FAERS Safety Report 10775696 (Version 3)
Quarter: 2015Q1

REPORT INFORMATION
  Report Type: Report from Study
  Country: BR (occurrence: BR)
  Receive Date: 20150209
  Receipt Date: 20150220
  Transmission Date: 20150721
  Serious: Yes (Other)
  Sender: FDA-Public Use
  Company Number: BR-SA-2015SA013335

PATIENT
  Age: 58 Year
  Sex: Female
  Weight: 72 kg

DRUGS (11)
  1. LEVOXIN [Concomitant]
     Indication: URINARY TRACT INFECTION
     Route: 048
     Dates: start: 2015
  2. BUSCOPAN [Concomitant]
     Active Substance: BUTYLSCOPOLAMINE BROMIDE
     Indication: PAIN
     Route: 048
     Dates: start: 2015
  3. PYRIDIUM [Concomitant]
     Active Substance: PHENAZOPYRIDINE
     Indication: DYSURIA
     Route: 048
     Dates: start: 2015
  4. APIDRA [Concomitant]
     Active Substance: INSULIN GLULISINE
     Indication: TYPE 2 DIABETES MELLITUS
     Dosage: DOSE: ACCORDING TO THE BLOOD GLUCOSE VALUE
     Route: 058
  5. LANTUS [Suspect]
     Active Substance: INSULIN GLARGINE
     Indication: TYPE 2 DIABETES MELLITUS
     Dosage: 10 IU IN MORNING AND 10 IU AT NIGHT
     Route: 058
     Dates: start: 2009
  6. METFORMIN [Concomitant]
     Active Substance: METFORMIN HYDROCHLORIDE
     Indication: TYPE 2 DIABETES MELLITUS
     Route: 048
  7. ONGLYZA [Concomitant]
     Active Substance: SAXAGLIPTIN HYDROCHLORIDE
     Indication: PANCREATIC DISORDER
     Route: 048
  8. FLOXOCIP [Concomitant]
     Indication: URINARY TRACT INFECTION
     Route: 048
     Dates: start: 2015
  9. DEVICE NOS [Concomitant]
     Active Substance: DEVICE
     Indication: DEVICE THERAPY
     Route: 058
     Dates: start: 2015
  10. ROSUVASTATIN [Concomitant]
     Active Substance: ROSUVASTATIN
     Indication: BLOOD CHOLESTEROL
     Route: 048
  11. MEDILET [Concomitant]
     Indication: CARDIAC DISORDER
     Route: 048

REACTIONS (10)
  - Dysuria [Recovering/Resolving]
  - Abasia [Unknown]
  - Urinary tract infection [Recovering/Resolving]
  - Blood cholesterol [Not Recovered/Not Resolved]
  - Application site discolouration [Not Recovered/Not Resolved]
  - Myocardial ischaemia [Not Recovered/Not Resolved]
  - Rash maculo-papular [Not Recovered/Not Resolved]
  - Pain in extremity [Unknown]
  - Joint swelling [Unknown]
  - Drug prescribing error [Unknown]

NARRATIVE: CASE EVENT DATE: 2009
